FAERS Safety Report 12118435 (Version 4)
Quarter: 2018Q2

REPORT INFORMATION
  Report Type: Spontaneous
  Country: JP (occurrence: JP)
  Receive Date: 20160226
  Receipt Date: 20180416
  Transmission Date: 20180711
  Serious: Yes (Hospitalization)
  Sender: FDA-Public Use
  Company Number: JP-ACTELION-A-CH2015-126219

PATIENT
  Age: 81 Year
  Sex: Female

DRUGS (18)
  1. BERAPROST SODIUM [Concomitant]
     Active Substance: BERAPROST SODIUM
  2. BIFIDOBACTERIUM ANIMALIS [Concomitant]
  3. AROTINOLOL HYDROCHLORIDE [Concomitant]
     Active Substance: AROTINOLOL HYDROCHLORIDE
  4. SODIUM RABEPRAZOLE [Concomitant]
     Active Substance: RABEPRAZOLE SODIUM
  5. FUROSEMIDE. [Concomitant]
     Active Substance: FUROSEMIDE
  6. MANIDIPINE HYDROCHLORIDE [Concomitant]
     Active Substance: MANIDIPINE HYDROCHLORIDE
  7. SODIUM BICARBONATE. [Concomitant]
     Active Substance: SODIUM BICARBONATE
  8. TRACLEER [Suspect]
     Active Substance: BOSENTAN
     Dosage: 62.5 MG, OD
     Route: 048
     Dates: start: 20151006, end: 20151020
  9. TOCOPHEROL ACETATE [Concomitant]
     Active Substance: .ALPHA.-TOCOPHEROL ACETATE
  10. ASPIRIN. [Concomitant]
     Active Substance: ASPIRIN
  11. BENZBROMARONE [Concomitant]
     Active Substance: BENZBROMARONE
  12. CANDESARTAN CILEXETIL. [Concomitant]
     Active Substance: CANDESARTAN CILEXETIL
  13. PREDNISOLONE. [Concomitant]
     Active Substance: PREDNISOLONE
  14. ENALAPRIL MALEATE. [Concomitant]
     Active Substance: ENALAPRIL MALEATE
  15. MENATETRENONE [Concomitant]
     Active Substance: MENATETRENONE
  16. TRACLEER [Suspect]
     Active Substance: BOSENTAN
     Indication: SCLERODERMA ASSOCIATED DIGITAL ULCER
     Dosage: 31.25 MG, OD
     Route: 048
     Dates: start: 20151111, end: 20151130
  17. FEBUXOSTAT. [Concomitant]
     Active Substance: FEBUXOSTAT
  18. NICERGOLINE [Concomitant]
     Active Substance: NICERGOLINE

REACTIONS (6)
  - Hepatic enzyme increased [Recovered/Resolved]
  - Skin ulcer [Unknown]
  - Gamma-glutamyltransferase increased [Recovered/Resolved]
  - Aspartate aminotransferase increased [Recovered/Resolved]
  - Alanine aminotransferase increased [Recovered/Resolved]
  - Condition aggravated [Unknown]

NARRATIVE: CASE EVENT DATE: 20151020
